FAERS Safety Report 7735347-4 (Version None)
Quarter: 2011Q3

REPORT INFORMATION
  Report Type: 
  Country: None (occurrence: None)
  Receive Date: 20110907
  Receipt Date: 20110830
  Transmission Date: 20111222
  Serious: Yes (Hospitalization, Other)
  Sender: FDA-Public Use
  Company Number: PHHY2011US56784

PATIENT
  Sex: Male
  Weight: 32.109 kg

DRUGS (18)
  1. CREON [Concomitant]
     Dosage: 5 WITH MEALS, 2-3 WITH SNACKS, QD
     Route: 048
  2. XOPENEX [Concomitant]
     Indication: COUGH
     Dosage: 1 DF, PRN
  3. TOBI [Suspect]
     Indication: CYSTIC FIBROSIS
     Dosage: 300 MG, BID IN A CYCLE OF 28 DAYS ON AND 28 DAYS OFF
     Dates: start: 20090330
  4. PULMOZYME [Concomitant]
     Dosage: 2.5 MG, BID
  5. XOPENEX [Concomitant]
     Dosage: 45 UG, BID
  6. OMEPRAZOLE [Concomitant]
     Dosage: 1 DF, BID
     Route: 048
  7. PULMOZYME [Concomitant]
     Dosage: 1 DF, BID
  8. NESTLE NUTRITION [Concomitant]
     Dosage: 3 CANS, QD
  9. ERGOCALCIFEROL [Concomitant]
     Dosage: 1 DF, QW (FOR 8 WEEKS)
     Route: 048
  10. SULFAMETHOXAZOLE [Concomitant]
     Dosage: 1 DF, BID
  11. MIRALAX [Concomitant]
     Dosage: 1 CAPFUL IN 8 OUNCES OF WATER, BID
  12. FLUTICASONE PROPIONATE [Concomitant]
     Dosage: 1 DF, QD
  13. QVAR 40 [Concomitant]
     Dosage: 2 DF, BID
  14. CULTURELLE [Concomitant]
     Dosage: 1 DF, BID
  15. AQUADEKS [Concomitant]
     Dosage: 2 DF, QD
     Route: 048
  16. AZITHROMYCIN [Concomitant]
     Dosage: 250 MG, QD (EVERY MONDAY, WEDNESDAY, FRIDAY)
     Route: 048
  17. HYPER SALINE [Concomitant]
     Dosage: 1 VIAL, UNK
  18. NORDITROPIN [Concomitant]
     Dosage: 1.35 MG, 7 NIGHTS A WEEK
     Route: 058

REACTIONS (10)
  - INFECTIVE PULMONARY EXACERBATION OF CYSTIC FIBROSIS [None]
  - HAEMOPTYSIS [None]
  - LUNG DISORDER [None]
  - PYREXIA [None]
  - INFECTION [None]
  - COUGH [None]
  - DYSPNOEA [None]
  - WHEEZING [None]
  - VOMITING [None]
  - PRODUCTIVE COUGH [None]
